FAERS Safety Report 19814474 (Version 2)
Quarter: 2021Q3

REPORT INFORMATION
  Report Type: Spontaneous
  Country: DE (occurrence: DE)
  Receive Date: 20210909
  Receipt Date: 20210917
  Transmission Date: 20211014
  Serious: Yes (Other)
  Sender: FDA-Public Use
  Company Number: DE-MYLANLABS-2021M1059482

PATIENT
  Age: 35 Year
  Sex: Female

DRUGS (2)
  1. L?THYROXIN                         /00068001/ [Concomitant]
     Active Substance: LEVOTHYROXINE
     Dosage: UNK
  2. ARIPIPRAZOLE. [Suspect]
     Active Substance: ARIPIPRAZOLE
     Indication: PRODUCT USED FOR UNKNOWN INDICATION
     Dosage: PROBABLY ALREADY MIXED IN SEVERAL TIMES (COFFEE, DRINK, FOOD)
     Route: 048

REACTIONS (5)
  - Illusion [Recovered/Resolved]
  - Accidental exposure to product [Recovered/Resolved]
  - Renal disorder [Recovered/Resolved]
  - Tunnel vision [Recovered/Resolved]
  - Feeling abnormal [Recovered/Resolved]
